FAERS Safety Report 10781341 (Version 2)
Quarter: 2015Q1

REPORT INFORMATION
  Report Type: Spontaneous
  Country: US (occurrence: US)
  Receive Date: 20150210
  Receipt Date: 20150227
  Transmission Date: 20150721
  Serious: Yes (Other)
  Sender: FDA-Public Use
  Company Number: US-PFIZER INC-2015046212

PATIENT
  Age: 82 Year
  Sex: Female

DRUGS (2)
  1. HEPARIN SODIUM. [Suspect]
     Active Substance: HEPARIN SODIUM
     Indication: FLUID RETENTION
     Dosage: UNK UNK, 1X/DAY
     Dates: start: 20141229, end: 20150104
  2. HEPARIN SODIUM. [Suspect]
     Active Substance: HEPARIN SODIUM
     Indication: CARDIAC FAILURE CONGESTIVE
     Dosage: UNK, 2X/DAY
     Dates: start: 20150105, end: 20150105

REACTIONS (19)
  - Abdominal pain [Unknown]
  - Dyspnoea [Unknown]
  - Muscle spasms [Unknown]
  - Vision blurred [Unknown]
  - Pruritus [Unknown]
  - Dry mouth [Unknown]
  - Tongue dry [Unknown]
  - Chest discomfort [Unknown]
  - Gait disturbance [Unknown]
  - Erythema [Recovered/Resolved]
  - Loss of consciousness [Unknown]
  - Ear disorder [Unknown]
  - Injection site rash [Recovered/Resolved]
  - Speech disorder [Unknown]
  - Dysphonia [Unknown]
  - Weight decreased [Unknown]
  - Breast atrophy [Unknown]
  - Peripheral swelling [Not Recovered/Not Resolved]
  - Product use issue [Unknown]
